FAERS Safety Report 6153728-X (Version None)
Quarter: 2009Q2

REPORT INFORMATION
  Report Type: 
  Country: None (occurrence: None)
  Receive Date: 20090410
  Receipt Date: 20090326
  Transmission Date: 20091009
  Serious: Yes (Hospitalization, Other)
  Sender: FDA-Public Use
  Company Number: 2009AP001289

PATIENT
  Age: 54 Year
  Sex: Female

DRUGS (3)
  1. OXCARBAZEPINE [Suspect]
     Dosage: 3 TABS;QD;PO
     Route: 048
  2. SYNTHROID [Suspect]
     Dosage: 150 UG
     Dates: end: 20090328
  3. LITHIUM CARBONATE [Concomitant]

REACTIONS (6)
  - CHEST DISCOMFORT [None]
  - CHEST PAIN [None]
  - DYSGEUSIA [None]
  - DYSPEPSIA [None]
  - FALL [None]
  - LIBIDO INCREASED [None]
